FAERS Safety Report 6757470 (Version 2)
Quarter: 2013Q1

REPORT INFORMATION
  Report Type: Report from Study
  Country: US (occurrence: US)
  Receive Date: 20080912
  Receipt Date: 20130130
  Transmission Date: 20140127
  Serious: Yes (Other)
  Sender: FDA-Public Use
  Company Number: US-ABBOTT-08P-163-0465723-00

PATIENT
  Sex: Female
  Weight: 95.34 kg

DRUGS (16)
  1. HUMIRA 40 MG/0.8 ML PEN [Suspect]
     Indication: CROHN^S DISEASE
     Route: 050
     Dates: start: 20080414, end: 2009
  2. HUMIRA 40 MG/0.8 ML PEN [Suspect]
     Route: 058
     Dates: start: 201111
  3. POTASSIUM [Concomitant]
     Indication: PRODUCT USED FOR UNKNOWN INDICATION
     Route: 048
  4. LEVOXYL [Concomitant]
     Indication: HYPOTHYROIDISM
     Route: 048
  5. HYDROCHLOROTHIAZIDE [Concomitant]
     Indication: HYPERTENSION
     Route: 048
  6. CELEXA [Concomitant]
     Indication: ANXIETY
     Route: 048
     Dates: start: 2006, end: 20080727
  7. PROTONIX [Concomitant]
     Indication: GASTROOESOPHAGEAL REFLUX DISEASE
     Route: 048
     Dates: start: 200806
  8. FLOMAX [Concomitant]
     Indication: ALLERGIC SINUSITIS
     Route: 048
  9. ZOLOFT [Concomitant]
     Indication: ANXIETY
     Dosage: EVERY 2-3 DAYS, AS REQUIRED
     Route: 048
  10. FLONASE [Concomitant]
     Indication: ALLERGIC SINUSITIS
     Route: 045
  11. VITAMIN B12 [Concomitant]
     Indication: PRODUCT USED FOR UNKNOWN INDICATION
     Route: 050
     Dates: start: 200801
  12. LEXAPRO [Concomitant]
     Indication: PRODUCT USED FOR UNKNOWN INDICATION
  13. COZAAR [Concomitant]
     Indication: PRODUCT USED FOR UNKNOWN INDICATION
  14. ARMOR THYROID [Concomitant]
     Indication: PRODUCT USED FOR UNKNOWN INDICATION
  15. NEXIUM [Concomitant]
     Indication: PRODUCT USED FOR UNKNOWN INDICATION
  16. CHOLESTYRAMINE [Concomitant]
     Indication: PRODUCT USED FOR UNKNOWN INDICATION
     Dosage: PRN, CURRENTLY USED DAILY

REACTIONS (12)
  - Crohn^s disease [Not Recovered/Not Resolved]
  - Influenza like illness [Not Recovered/Not Resolved]
  - Cough [Not Recovered/Not Resolved]
  - Sinusitis [Unknown]
  - Drug effect decreased [Unknown]
  - Frequent bowel movements [Not Recovered/Not Resolved]
  - Dysphonia [Unknown]
  - Fatigue [Unknown]
  - Weight increased [Not Recovered/Not Resolved]
  - Fall [Unknown]
  - Scab [Unknown]
  - Injection site pain [Unknown]
